FAERS Safety Report 15904974 (Version 3)
Quarter: 2019Q1

REPORT INFORMATION
  Report Type: Report from Study
  Country: US (occurrence: US)
  Receive Date: 20190204
  Receipt Date: 20190215
  Transmission Date: 20190417
  Serious: Yes (Other)
  Sender: FDA-Public Use
  Company Number: US-AMGEN INC.-USASP2019016412

PATIENT
  Age: 63 Year
  Sex: Female

DRUGS (4)
  1. AIMOVIG [Suspect]
     Active Substance: ERENUMAB-AOOE
     Indication: MIGRAINE WITHOUT AURA
     Dosage: 140 MG, QMO
     Route: 065
     Dates: start: 201809
  2. PRISTIQ EXTENDED-RELEASE [Concomitant]
     Active Substance: DESVENLAFAXINE SUCCINATE
     Indication: MIGRAINE
  3. GABAPENTIN. [Concomitant]
     Active Substance: GABAPENTIN
     Indication: MIGRAINE
  4. ZOLMITRIPTAN. [Concomitant]
     Active Substance: ZOLMITRIPTAN
     Dosage: UNK
     Route: 065

REACTIONS (13)
  - Injection site swelling [Unknown]
  - Wrong technique in product usage process [Unknown]
  - Injection site pain [Unknown]
  - Migraine [Unknown]
  - Accidental exposure to product [Unknown]
  - Influenza like illness [Unknown]
  - Crohn^s disease [Unknown]
  - Drug effect decreased [Unknown]
  - Product storage error [Unknown]
  - Contusion [Unknown]
  - Herpes zoster [Not Recovered/Not Resolved]
  - Device malfunction [Unknown]
  - Constipation [Unknown]

NARRATIVE: CASE EVENT DATE: 201809
